FAERS Safety Report 25515602 (Version 1)
Quarter: 2025Q3

REPORT INFORMATION
  Report Type: Other
  Country: GB (occurrence: GB)
  Receive Date: 20250704
  Receipt Date: 20250704
  Transmission Date: 20251020
  Serious: Yes (Other)
  Sender: STRIDES
  Company Number: None

PATIENT
  Age: 68 Year
  Sex: Male
  Weight: 113 kg

DRUGS (2)
  1. COLCHICINE [Suspect]
     Active Substance: COLCHICINE
     Indication: Gout
     Route: 065
  2. LISINOPRIL [Concomitant]
     Active Substance: LISINOPRIL
     Indication: Hypertension
     Route: 065
     Dates: start: 20050505

REACTIONS (2)
  - Medication error [Unknown]
  - Dizziness [Unknown]
